FAERS Safety Report 21324655 (Version 1)
Quarter: 2022Q3

REPORT INFORMATION
  Report Type: Report from Study
  Country: CA (occurrence: CA)
  Receive Date: 20220912
  Receipt Date: 20220912
  Transmission Date: 20221026
  Serious: Yes (Death, Hospitalization)
  Sender: FDA-Public Use
  Company Number: CA-AstraZeneca-2022A287276

PATIENT
  Sex: Female

DRUGS (1)
  1. ENHERTU [Suspect]
     Active Substance: FAM-TRASTUZUMAB DERUXTECAN-NXKI
     Indication: HER2 positive breast cancer
     Dosage: 278 MG, ONCE EVERY 3 WK
     Route: 042
     Dates: start: 20220519

REACTIONS (3)
  - Death [Fatal]
  - Pneumonia [Unknown]
  - COVID-19 [Unknown]
